FAERS Safety Report 6608991-5 (Version None)
Quarter: 2010Q1

REPORT INFORMATION
  Report Type: 
  Country: None (occurrence: None)
  Receive Date: 20100301
  Receipt Date: 20100225
  Transmission Date: 20100710
  Serious: Yes (Other)
  Sender: FDA-Public Use
  Company Number: JP-GENENTECH-296354

PATIENT
  Age: 52 Year
  Sex: Female

DRUGS (3)
  1. RITUXAN [Suspect]
     Indication: B-CELL LYMPHOMA
     Dosage: 250 MG/M2, UNK
     Route: 042
     Dates: start: 20090708, end: 20090715
  2. YTTRIUM-90 IBRITUMOMAB TIUXETAN [Suspect]
     Indication: B-CELL LYMPHOMA
     Dosage: 11.1 MBQ, SINGLE
     Route: 042
     Dates: start: 20090715
  3. INDIUM-111 IBRITUMOMAB TIUXETAN [Suspect]
     Indication: B-CELL LYMPHOMA
     Dosage: 130 MBQ, SINGLE
     Route: 042
     Dates: start: 20090708

REACTIONS (1)
  - FEBRILE NEUTROPENIA [None]
